FAERS Safety Report 25151914 (Version 1)
Quarter: 2025Q2

REPORT INFORMATION
  Report Type: Spontaneous
  Country: HU (occurrence: HU)
  Receive Date: 20250402
  Receipt Date: 20250402
  Transmission Date: 20250717
  Serious: Yes (Death, Hospitalization)
  Sender: ASTELLAS
  Company Number: HU-ASTELLAS-2025-AER-018374

PATIENT
  Age: 48 Year
  Sex: Female

DRUGS (1)
  1. GILTERITINIB [Suspect]
     Active Substance: GILTERITINIB
     Indication: Acute myeloid leukaemia
     Route: 065
     Dates: start: 202312, end: 202410

REACTIONS (7)
  - Death [Fatal]
  - Pancytopenia [Unknown]
  - Sepsis [Unknown]
  - Gingival hypertrophy [Unknown]
  - Leukocytosis [Unknown]
  - Monocytosis [Unknown]
  - Haematoma [Unknown]

NARRATIVE: CASE EVENT DATE: 20241001
